FAERS Safety Report 9214422 (Version 2)
Quarter: 2014Q1

REPORT INFORMATION
  Report Type: Spontaneous
  Country: US (occurrence: US)
  Receive Date: 20130405
  Receipt Date: 20140114
  Transmission Date: 20141002
  Serious: Yes (Other)
  Sender: FDA-Public Use
  Company Number: US-BAYER-2013-040547

PATIENT
  Age: 33 Year
  Sex: Female

DRUGS (5)
  1. YAZ [Suspect]
     Dosage: UNK
     Route: 048
     Dates: start: 2005, end: 2010
  2. YASMIN [Suspect]
     Dosage: UNK
     Route: 048
     Dates: start: 2005, end: 2010
  3. OCELLA [Suspect]
     Dosage: UNK
     Dates: start: 2005, end: 2010
  4. LEXAPRO [Concomitant]
  5. KLONOPIN [Concomitant]
     Dosage: UNK

REACTIONS (8)
  - Cholecystitis acute [None]
  - Cholelithiasis [None]
  - Abdominal pain [None]
  - Injury [None]
  - Emotional distress [None]
  - General physical health deterioration [None]
  - Anxiety [None]
  - Pain [None]
